FAERS Safety Report 22036674 (Version 1)
Quarter: 2023Q1

REPORT INFORMATION
  Report Type: Spontaneous
  Country: DK (occurrence: DK)
  Receive Date: 20230225
  Receipt Date: 20230225
  Transmission Date: 20230418
  Serious: Yes (Death, Hospitalization)
  Sender: FDA-Public Use
  Company Number: None

PATIENT
  Age: 79 Year
  Sex: Female

DRUGS (1)
  1. DICLOXACILLIN SODIUM [Suspect]
     Active Substance: DICLOXACILLIN SODIUM
     Indication: Wound infection
     Dosage: 3000 MG, QD
     Route: 048
     Dates: start: 20230113, end: 20230123

REACTIONS (2)
  - Suspected transmission of an infectious agent via product [Fatal]
  - Sepsis [Fatal]

NARRATIVE: CASE EVENT DATE: 20230101
